FAERS Safety Report 18779439 (Version 1)
Quarter: 2021Q1

REPORT INFORMATION
  Report Type: Spontaneous
  Country: US (occurrence: US)
  Receive Date: 20210125
  Receipt Date: 20210125
  Transmission Date: 20210419
  Serious: No
  Sender: FDA-Public Use
  Company Number: US-009507513-2101USA006999

PATIENT
  Sex: Female

DRUGS (7)
  1. OVIDREL [Concomitant]
     Active Substance: CHORIOGONADOTROPIN ALFA
  2. MINERALS (UNSPECIFIED) (+) VITAMINS (UNSPECIFIED) [Concomitant]
     Active Substance: MINERALS\VITAMINS
  3. AZITHROMYCIN ANHYDROUS. [Concomitant]
     Active Substance: AZITHROMYCIN ANHYDROUS
  4. MENOPUR [Concomitant]
     Active Substance: FOLLITROPIN\LUTEINIZING HORMONE
  5. LEUPROLIDE [Concomitant]
     Active Substance: LEUPROLIDE
  6. FOLLISTIM AQ [Suspect]
     Active Substance: FOLLITROPIN
     Indication: INFERTILITY FEMALE
     Dosage: STRENGTH: 900 INTERNATIONAL UNITS/MILLILITRE (IU/ML), 450 UNITS, QDX10/14 D
     Route: 058
     Dates: start: 20210109
  7. GANIRELIX ACETATE INJECTION [Concomitant]
     Active Substance: GANIRELIX ACETATE

REACTIONS (1)
  - Insomnia [Unknown]

NARRATIVE: CASE EVENT DATE: 2021
